FAERS Safety Report 9704868 (Version 2)
Quarter: 2014Q1

REPORT INFORMATION
  Report Type: Spontaneous
  Country: IT (occurrence: IT)
  Receive Date: 20131122
  Receipt Date: 20140120
  Transmission Date: 20141002
  Serious: Yes (Hospitalization)
  Sender: FDA-Public Use
  Company Number: IT-ABBVIE-13P-083-1171678-00

PATIENT
  Age: 19 Year
  Sex: Female

DRUGS (2)
  1. DEPAKINE [Suspect]
     Indication: DRUG ABUSE
     Route: 048
     Dates: start: 20131018, end: 20131018
  2. ALPRAZOLAM [Suspect]
     Indication: DRUG ABUSE
     Route: 048
     Dates: start: 20131018, end: 20131018

REACTIONS (3)
  - Sopor [Not Recovered/Not Resolved]
  - Drug abuse [Unknown]
  - Psychotic disorder [Unknown]
